FAERS Safety Report 6673497-4 (Version None)
Quarter: 2010Q1

REPORT INFORMATION
  Report Type: 
  Country: None (occurrence: None)
  Receive Date: 20100329
  Receipt Date: 20090922
  Transmission Date: 20100710
  Serious: Yes (Other)
  Sender: FDA-Public Use
  Company Number: 200927690

PATIENT
  Sex: Female

DRUGS (3)
  1. GEODON [Suspect]
  2. THORAZINE [Concomitant]
  3. HALDOL [Concomitant]

REACTIONS (1)
  - ELECTROCARDIOGRAM QT PROLONGED [None]
